FAERS Safety Report 17128456 (Version 1)
Quarter: 2019Q4

REPORT INFORMATION
  Report Type: Spontaneous
  Country: CO (occurrence: CO)
  Receive Date: 20191209
  Receipt Date: 20191209
  Transmission Date: 20200122
  Serious: Yes (Hospitalization)
  Sender: FDA-Public Use
  Company Number: CO-VERTEX PHARMACEUTICALS-2019-011171

PATIENT
  Age: 28 Year
  Sex: Female

DRUGS (10)
  1. ORKAMBI [Suspect]
     Active Substance: IVACAFTOR\LUMACAFTOR
     Dosage: 1 DOSAGE FORM, QD
     Route: 048
     Dates: start: 2019
  2. OMEPRAZOLE. [Concomitant]
     Active Substance: OMEPRAZOLE
     Dosage: 20 MG, BID
  3. CALCIUM [Concomitant]
     Active Substance: CALCIUM
     Dosage: 600 MG, BID
     Route: 048
  4. VITAMIN D [ERGOCALCIFEROL] [Concomitant]
     Active Substance: ERGOCALCIFEROL
     Dosage: 7000 IU INTERNATIONAL UNIT(S), WEEKLY
  5. SALBUTAMOL [Concomitant]
     Active Substance: ALBUTEROL
     Dosage: 3 PUFF AFTER EXACT 3 HOURS
     Route: 055
  6. ORKAMBI [Suspect]
     Active Substance: IVACAFTOR\LUMACAFTOR
     Indication: CYSTIC FIBROSIS
     Dosage: UNKNOWN
     Route: 048
     Dates: start: 201910, end: 20191113
  7. ORKAMBI [Suspect]
     Active Substance: IVACAFTOR\LUMACAFTOR
     Dosage: 1 DOSAGE FORM EACH 48 HOURS
     Route: 048
     Dates: start: 2019
  8. VITAMIN E [Concomitant]
     Active Substance: .ALPHA.-TOCOPHEROL
     Dosage: 400 IU INTERNATIONAL UNIT(S), DAILY
  9. LEVOTHYROXINE. [Concomitant]
     Active Substance: LEVOTHYROXINE
     Indication: HYPOTHYROIDISM
     Dosage: 50 MG DAILY FROM MONDAY TO SATURDAY
     Route: 048
  10. VITAMIN K [PHYTOMENADIONE] [Concomitant]
     Dosage: 1 DOSAGE FORM, WEEKELY
     Route: 048

REACTIONS (3)
  - Choking sensation [Recovered/Resolved]
  - Hospitalisation [Not Recovered/Not Resolved]
  - Respiratory distress [Recovered/Resolved]

NARRATIVE: CASE EVENT DATE: 2019
